FAERS Safety Report 6959259-9 (Version None)
Quarter: 2010Q3

REPORT INFORMATION
  Report Type: 
  Country: None (occurrence: None)
  Receive Date: 20100831
  Receipt Date: 20100826
  Transmission Date: 20110219
  Serious: No
  Sender: FDA-Public Use
  Company Number: US-PFIZER INC-2010083170

PATIENT
  Sex: Female
  Weight: 59 kg

DRUGS (2)
  1. CYTOTEC [Suspect]
     Indication: ABORTION INCOMPLETE
     Dosage: 800 UG, DAILY
     Route: 048
     Dates: start: 20100627, end: 20100627
  2. MULTI-VITAMINS [Concomitant]
     Dosage: UNK

REACTIONS (1)
  - OFF LABEL USE [None]
